FAERS Safety Report 25425783 (Version 3)
Quarter: 2025Q3

REPORT INFORMATION
  Report Type: Report from Study
  Country: CA (occurrence: CA)
  Receive Date: 20250611
  Receipt Date: 20250711
  Transmission Date: 20251020
  Serious: Yes (Other)
  Sender: JOHNSON AND JOHNSON
  Company Number: CA-JNJFOC-20250422160

PATIENT
  Age: 56 Year
  Sex: Male

DRUGS (2)
  1. SIMPONI [Suspect]
     Active Substance: GOLIMUMAB
     Indication: Ankylosing spondylitis
     Route: 058
     Dates: start: 20191121
  2. SIMPONI [Suspect]
     Active Substance: GOLIMUMAB
     Dosage: 50.00 MG / 0.50 ML
     Route: 058
     Dates: start: 20200903

REACTIONS (8)
  - Ankylosing spondylitis [Unknown]
  - Device malfunction [Unknown]
  - Accidental exposure to product [Unknown]
  - Needle issue [Unknown]
  - Inappropriate schedule of product administration [Unknown]
  - Therapeutic response decreased [Unknown]
  - Off label use [Unknown]
  - Product dose omission issue [Unknown]

NARRATIVE: CASE EVENT DATE: 20250602
